FAERS Safety Report 6389053-1 (Version None)
Quarter: 2009Q4

REPORT INFORMATION
  Report Type: 
  Country: None (occurrence: None)
  Receive Date: 20091001
  Receipt Date: 20090921
  Transmission Date: 20100525
  Serious: Yes (Hospitalization, Other)
  Sender: FDA-Public Use
  Company Number: 2009-195833-NL

PATIENT
  Age: 14 Year
  Sex: Female
  Weight: 77.1115 kg

DRUGS (6)
  1. NUVARING [Suspect]
     Indication: CONTRACEPTION
     Dosage: 1 DF; QM; VAG
     Route: 067
     Dates: start: 20071007
  2. NUVARING [Suspect]
     Indication: MENSTRUATION IRREGULAR
     Dosage: 1 DF; QM; VAG
     Route: 067
     Dates: start: 20071007
  3. XOPENEX [Concomitant]
  4. MIDOL [Concomitant]
  5. TYLENOL (CAPLET) [Concomitant]
  6. INFLUENZA VACCINE [Concomitant]

REACTIONS (11)
  - BRONCHITIS [None]
  - CEREBRAL HAEMORRHAGE [None]
  - EAR CONGESTION [None]
  - INTRACRANIAL VENOUS SINUS THROMBOSIS [None]
  - MIGRAINE [None]
  - MUSCLE TWITCHING [None]
  - OROPHARYNGEAL PAIN [None]
  - PARAESTHESIA ORAL [None]
  - PROTEIN C DEFICIENCY [None]
  - TRANSIENT ISCHAEMIC ATTACK [None]
  - WHITE BLOOD CELL COUNT INCREASED [None]
